APPROVED DRUG PRODUCT: CLOMIPRAMINE HYDROCHLORIDE
Active Ingredient: CLOMIPRAMINE HYDROCHLORIDE
Strength: 50MG
Dosage Form/Route: CAPSULE;ORAL
Application: A213897 | Product #002
Applicant: AJANTA PHARMA LTD
Approved: Oct 2, 2020 | RLD: No | RS: No | Type: DISCN